FAERS Safety Report 9302154 (Version 1)
Quarter: 2013Q2

REPORT INFORMATION
  Report Type: Spontaneous
  Country: NZ (occurrence: NZ)
  Receive Date: 20130522
  Receipt Date: 20130522
  Transmission Date: 20140414
  Serious: Yes (Hospitalization, Other)
  Sender: FDA-Public Use
  Company Number: NZ-B.I. PHARMACEUTICALS,INC./RIDGEFIELD-2013-AU-00596AU

PATIENT
  Age: 8 Decade
  Sex: Male

DRUGS (1)
  1. PRADAXA [Suspect]
     Indication: ATRIAL FIBRILLATION

REACTIONS (5)
  - Urinary tract infection [Recovered/Resolved]
  - Renal impairment [Recovered/Resolved]
  - Dehydration [Recovered/Resolved]
  - Confusional state [Recovered/Resolved]
  - Gastrointestinal haemorrhage [Recovered/Resolved]
